FAERS Safety Report 25251026 (Version 1)
Quarter: 2025Q2

REPORT INFORMATION
  Report Type: Spontaneous
  Country: US (occurrence: US)
  Receive Date: 20250429
  Receipt Date: 20250429
  Transmission Date: 20250716
  Serious: Yes (Life-Threatening, Hospitalization)
  Sender: MYLAN
  Company Number: US-MYLANLABS-2025M1036742

PATIENT
  Age: 68 Year
  Sex: Male

DRUGS (7)
  1. SCOPOLAMINE TRANSDERMAL SYSTEM [Suspect]
     Active Substance: SCOPOLAMINE
     Indication: Bradyarrhythmia
  2. ALBUTEROL [Suspect]
     Active Substance: ALBUTEROL
     Indication: Bradyarrhythmia
  3. EPINEPHRINE [Suspect]
     Active Substance: EPINEPHRINE
     Indication: Bradyarrhythmia
  4. DOPAMINE [Suspect]
     Active Substance: DOPAMINE HYDROCHLORIDE
     Indication: Bradyarrhythmia
  5. ISOPROTERENOL [Suspect]
     Active Substance: ISOPROTERENOL
     Indication: Bradyarrhythmia
  6. AMINOPHYLLINE [Suspect]
     Active Substance: AMINOPHYLLINE
     Indication: Bradyarrhythmia
  7. LEVOTHYROXINE [Concomitant]
     Active Substance: LEVOTHYROXINE
     Indication: Decompensated hypothyroidism

REACTIONS (2)
  - Drug ineffective for unapproved indication [Unknown]
  - Off label use [Unknown]
